FAERS Safety Report 13393756 (Version 1)
Quarter: 2017Q1

REPORT INFORMATION
  Report Type: Spontaneous
  Country: CA (occurrence: CA)
  Receive Date: 20170331
  Receipt Date: 20170331
  Transmission Date: 20170429
  Serious: Yes (Life-Threatening, Hospitalization, Other)
  Sender: FDA-Public Use
  Company Number: CA-BRISTOL-MYERS SQUIBB COMPANY-BMS-2017-026177

PATIENT
  Sex: Male

DRUGS (1)
  1. ORENCIA [Suspect]
     Active Substance: ABATACEPT
     Indication: RHEUMATOID ARTHRITIS
     Dosage: UNK UNK, QMO
     Route: 042
     Dates: start: 201601, end: 201609

REACTIONS (11)
  - Drain placement [Unknown]
  - Transfusion [Unknown]
  - Drug ineffective [Unknown]
  - Liver abscess [Unknown]
  - Condition aggravated [Unknown]
  - Eye infection [Unknown]
  - Contusion [Unknown]
  - Cholecystitis infective [Unknown]
  - Abscess drainage [Unknown]
  - Cardiac arrest [Unknown]
  - Blood count abnormal [Unknown]
